FAERS Safety Report 8152778-1 (Version None)
Quarter: 2012Q1

REPORT INFORMATION
  Report Type: 
  Country: None (occurrence: None)
  Receive Date: 20120103
  Receipt Date: 20110921
  Transmission Date: 20120608
  Serious: No
  Sender: FDA-Public Use
  Company Number: AE-2011-000691

PATIENT
  Age: 60 Year
  Sex: Female
  Weight: 68.0396 kg

DRUGS (7)
  1. INCIVEK [Suspect]
     Dosage: (750 MG)
     Dates: start: 20110727
  2. PEGASYS [Concomitant]
  3. PRAMIPEXOLE DIHYDROCHLORIDE [Concomitant]
  4. CELEXA [Concomitant]
  5. RIBAVIRIN [Concomitant]
  6. ASPIRIN [Concomitant]
  7. MULTIVITAMIN (MULTIVITAMIN ^LAPPE^) [Concomitant]

REACTIONS (4)
  - PRESYNCOPE [None]
  - NAUSEA [None]
  - COLD SWEAT [None]
  - DIZZINESS [None]
